FAERS Safety Report 18467579 (Version 1)
Quarter: 2020Q4

REPORT INFORMATION
  Report Type: Spontaneous
  Country: US (occurrence: US)
  Receive Date: 20201104
  Receipt Date: 20201104
  Transmission Date: 20210114
  Serious: Yes (Other)
  Sender: FDA-Public Use
  Company Number: None

PATIENT
  Age: 92 Year
  Sex: Male
  Weight: 77.7 kg

DRUGS (4)
  1. LUPRON DEPOT 6 MONTHS [Concomitant]
     Dates: start: 20180919
  2. ZOFRAN [Concomitant]
     Active Substance: ONDANSETRON HYDROCHLORIDE
     Dates: start: 20201022
  3. LYNPARZA [Suspect]
     Active Substance: OLAPARIB
     Indication: PROSTATE CANCER METASTATIC
     Route: 048
     Dates: start: 20201012, end: 20201028
  4. COMPAZINE [Concomitant]
     Active Substance: PROCHLORPERAZINE MALEATE
     Dates: start: 20201013

REACTIONS (5)
  - Vomiting [None]
  - Nausea [None]
  - Fatigue [None]
  - Loss of personal independence in daily activities [None]
  - Fall [None]

NARRATIVE: CASE EVENT DATE: 20201028
